FAERS Safety Report 9719248 (Version 1)
Quarter: 2013Q4

REPORT INFORMATION
  Report Type: Spontaneous
  Country: US (occurrence: US)
  Receive Date: 20131127
  Receipt Date: 20131127
  Transmission Date: 20140711
  Serious: Yes (Other)
  Sender: FDA-Public Use
  Company Number: PHEH2013US024650

PATIENT
  Sex: Male

DRUGS (2)
  1. SANDOSTATIN LAR DEPOT [Suspect]
     Indication: CARCINOID TUMOUR OF THE PANCREAS
     Dosage: UNK UKN, UNK
  2. COUMADIN [Concomitant]
     Dosage: UNK UKN, UNK

REACTIONS (8)
  - Bone cancer [Unknown]
  - Gastrointestinal haemorrhage [Recovered/Resolved]
  - Metastases to spleen [Unknown]
  - White blood cell count decreased [Unknown]
  - Platelet count decreased [Unknown]
  - Diarrhoea [Recovered/Resolved]
  - Abdominal pain [Unknown]
  - Injection site pain [Recovered/Resolved]
